FAERS Safety Report 5537674-8 (Version None)
Quarter: 2007Q4

REPORT INFORMATION
  Report Type: 
  Country: None (occurrence: None)
  Receive Date: 20071207
  Receipt Date: 20071127
  Transmission Date: 20080405
  Serious: Yes (Hospitalization)
  Sender: FDA-Public Use
  Company Number: ES-ROCHE-533730

PATIENT
  Age: 57 Year
  Sex: Female
  Weight: 61 kg

DRUGS (10)
  1. CAPECITABINE [Suspect]
     Dosage: DOSAGE REGIMEN TEMPORARILY INTERRUPTED. FREQUENCY REPORTED AS EVERY DAY DURING 2 WEEKS. AS PER PROT+
     Route: 048
     Dates: start: 20071102, end: 20071113
  2. BEVACIZUMAB [Suspect]
     Dosage: DOSAGE FORM REPORTED AS I.V.
     Route: 042
     Dates: start: 20071102
  3. OXALIPLATIN [Suspect]
     Dosage: DOSAGE FORM REPORTED AS I.V.
     Route: 042
     Dates: start: 20071102
  4. FORTECORTIN [Concomitant]
     Dates: start: 20070101
  5. INSULINE [Concomitant]
     Dosage: DRUG NAME REPORTED AS FAST INSULINE. TOTAL DAILY DOSE REPORTED AS 10-10-10.
     Dates: start: 20070101
  6. INSULINE [Concomitant]
     Dosage: DRUG NAME REPORTED AS SLOW INSULINE. TOTAL DAILY DOSE REPORTED AS 0-0-30.
     Dates: start: 20070101
  7. OMEPRAZOLE [Concomitant]
     Dates: start: 20070101
  8. ORFIDAL [Concomitant]
     Dosage: TOTAL DAILY DOSE UNKNOWN.
     Dates: start: 20070101
  9. FERROUS [Concomitant]
     Dosage: DRUG NAME REPORTED AS FE ORAL. TOTAL DAILY DOSE UNKNOWN.
     Route: 048
     Dates: start: 20070101
  10. PARACETAMOL [Concomitant]
     Dosage: TOTAL DAILY DOSE UNKNOWN.
     Dates: start: 20071001

REACTIONS (2)
  - DIARRHOEA [None]
  - MUCOSAL INFLAMMATION [None]
